FAERS Safety Report 5851593-9 (Version None)
Quarter: 2008Q3

REPORT INFORMATION
  Report Type: 
  Country: None (occurrence: None)
  Receive Date: 20080731
  Receipt Date: 20080610
  Transmission Date: 20090109
  Serious: No
  Sender: FDA-Public Use
  Company Number: US200708004375

PATIENT
  Age: 59 Year
  Sex: Female
  Weight: 72.6 kg

DRUGS (17)
  1. BYETTA [Suspect]
     Indication: TYPE 2 DIABETES MELLITUS
     Dosage: 5 UG, 2/D, SUBCUTANEOUS ; 5 UG, 2/D, SUBCUTANEOUS ; 10 UG, 2/D, SUBCUTANEOUS
     Route: 058
     Dates: start: 20070726, end: 20070101
  2. BYETTA [Suspect]
     Indication: TYPE 2 DIABETES MELLITUS
     Dosage: 5 UG, 2/D, SUBCUTANEOUS ; 5 UG, 2/D, SUBCUTANEOUS ; 10 UG, 2/D, SUBCUTANEOUS
     Route: 058
     Dates: start: 20070726, end: 20070801
  3. BYETTA [Suspect]
     Indication: TYPE 2 DIABETES MELLITUS
     Dosage: 5 UG, 2/D, SUBCUTANEOUS ; 5 UG, 2/D, SUBCUTANEOUS ; 10 UG, 2/D, SUBCUTANEOUS
     Route: 058
     Dates: start: 20070801
  4. BYETTA [Suspect]
  5. METFORMIN HCL [Concomitant]
  6. AMARYL [Concomitant]
  7. ACTOS [Concomitant]
  8. PREDNISONE [Concomitant]
  9. VASOTEC [Concomitant]
  10. SYNTHROID [Concomitant]
  11. CLONIDINE [Concomitant]
  12. FLONASE [Concomitant]
  13. BUSPAR [Concomitant]
  14. VOSPIRE (SALBUTAMOL SULFATE) [Concomitant]
  15. BENADRYL (DIPHENHYDRAMINE HYDROCHLORIDE, PARACETAMOL, PSEUDOEPHEDRINE [Concomitant]
  16. ASPIRIN [Concomitant]
  17. ALLEGRA [Concomitant]

REACTIONS (6)
  - BLOOD GLUCOSE DECREASED [None]
  - BLOOD GLUCOSE INCREASED [None]
  - HEADACHE [None]
  - INJECTION SITE HAEMORRHAGE [None]
  - NAUSEA [None]
  - WEIGHT DECREASED [None]
